FAERS Safety Report 9548626 (Version 1)
Quarter: 2013Q2

REPORT INFORMATION
  Report Type: Spontaneous
  Country: US (occurrence: None)
  Receive Date: 20130618
  Receipt Date: 20130618
  Transmission Date: 20140414
  Serious: Yes (Other)
  Sender: FDA-Public Use
  Company Number: AUR-APL-2013-02403

PATIENT
  Age: 48 Year
  Sex: Female

DRUGS (8)
  1. CIPROFLOXACIN (CIPROFLOXACIN) [Suspect]
     Indication: PRODUCT USED FOR UNKNOWN INDICATION
  2. TRAMADOL [Suspect]
     Indication: PRODUCT USED FOR UNKNOWN INDICATION
  3. VANTIN [Suspect]
     Indication: PRODUCT USED FOR UNKNOWN INDICATION
  4. VIBRAMYCIN (DOXYCYCLINE) [Suspect]
     Indication: PRODUCT USED FOR UNKNOWN INDICATION
  5. MECLOZINE HCL [Suspect]
     Indication: PRODUCT USED FOR UNKNOWN INDICATION
  6. BACTRIM (BACTRIM) (SULFAMETHOXAZOLE, TRIMETHOPRIM) [Suspect]
     Indication: PRODUCT USED FOR UNKNOWN INDICATION
  7. KEFLEX [Suspect]
     Indication: PRODUCT USED FOR UNKNOWN INDICATION
  8. ULTRACET [Suspect]
     Indication: PRODUCT USED FOR UNKNOWN INDICATION

REACTIONS (2)
  - Anaphylactic reaction [None]
  - Drug hypersensitivity [None]
